FAERS Safety Report 12790495 (Version 1)
Quarter: 2016Q3

REPORT INFORMATION
  Report Type: Spontaneous
  Country: US (occurrence: US)
  Receive Date: 20160929
  Receipt Date: 20160929
  Transmission Date: 20161109
  Serious: No
  Sender: FDA-Public Use
  Company Number: US-JNJFOC-20160826138

PATIENT
  Age: 69 Year
  Sex: Male
  Weight: 96.62 kg

DRUGS (4)
  1. CETIRIZINE [Suspect]
     Active Substance: CETIRIZINE HYDROCHLORIDE
     Indication: NASAL DECONGESTION THERAPY
     Dosage: NIGHTLY
     Route: 065
  2. CETIRIZINE [Suspect]
     Active Substance: CETIRIZINE HYDROCHLORIDE
     Route: 065
  3. SIMPLY SLEEP [Suspect]
     Active Substance: DIPHENHYDRAMINE HYDROCHLORIDE
     Indication: SLEEP DISORDER THERAPY
     Route: 048
     Dates: start: 20160825, end: 20160825
  4. TRAZODONE [Concomitant]
     Active Substance: TRAZODONE HYDROCHLORIDE
     Indication: SLEEP DISORDER THERAPY
     Route: 065

REACTIONS (3)
  - Restless legs syndrome [Recovered/Resolved]
  - Insomnia [Recovered/Resolved]
  - Restlessness [Recovered/Resolved]

NARRATIVE: CASE EVENT DATE: 20160825
